FAERS Safety Report 4562053-X (Version None)
Quarter: 2005Q1

REPORT INFORMATION
  Report Type: 
  Country: None (occurrence: None)
  Receive Date: 20050125
  Receipt Date: 20050110
  Transmission Date: 20050727
  Serious: Yes (Hospitalization, Other)
  Sender: FDA-Public Use
  Company Number: 2005S1000091

PATIENT
  Age: 43 Year
  Sex: Female

DRUGS (2)
  1. IXABEPILONE [Concomitant]
     Indication: NEOPLASM MALIGNANT
     Dosage: 600 MG, INTRAVENOUS
     Route: 042
     Dates: start: 20040324
  2. KETOCONAZOLE [Suspect]
     Indication: NEOPLASM MALIGNANT
     Dosage: 400 MG/DAY, ORAL
     Route: 048
     Dates: start: 20040323, end: 20040326

REACTIONS (7)
  - ALANINE AMINOTRANSFERASE INCREASED [None]
  - ASPARTATE AMINOTRANSFERASE INCREASED [None]
  - FATIGUE [None]
  - FEBRILE NEUTROPENIA [None]
  - ORAL CANDIDIASIS [None]
  - PAIN [None]
  - RASH [None]
